FAERS Safety Report 9196160 (Version 1)
Quarter: 2013Q1

REPORT INFORMATION
  Report Type: Spontaneous
  Country: US (occurrence: None)
  Receive Date: 20120709
  Receipt Date: 20120709
  Transmission Date: 20140127
  Serious: No
  Sender: FDA-Public Use
  Company Number: 2012HGS-003686

PATIENT
  Age: 50 Year
  Sex: Female
  Weight: 85.28 kg

DRUGS (7)
  1. BENLYSTA [Suspect]
     Indication: SYSTEMIC LUPUS ERYTHEMATOSUS
     Dosage: 1 IN 14 D, INTRAVENOUS DRIP
     Route: 041
     Dates: start: 20120524
  2. PLAQUENIL (HYDROXYCHLOROQUINE SULFATE) (HYDROXYCHLOROQUINE SULFATE) [Concomitant]
  3. PREDNISONE (PREDNISONE) [Concomitant]
  4. MORPHINE ER (MORPHINE SULFATE) (MORPHINE SULFATE) [Concomitant]
  5. FOLIC ACID (FOLIC ACID) (FOLIC ACID) [Concomitant]
  6. VITAMIN D (ERGOCALCIFEROL) (ERGOCALCIFEROL) [Concomitant]
  7. GABAPENTIN (GABAPENTIN) (GABAPENTIN) [Concomitant]

REACTIONS (1)
  - Pain in extremity [None]
